FAERS Safety Report 19419478 (Version 4)
Quarter: 2024Q3

REPORT INFORMATION
  Report Type: Spontaneous
  Country: DE (occurrence: DE)
  Receive Date: 20210615
  Receipt Date: 20240914
  Transmission Date: 20241016
  Serious: Yes (Disabling, Other)
  Sender: IPSEN
  Company Number: DE-KOREA IPSEN PHARMA-2021-14630

PATIENT
  Age: 68 Year
  Sex: Male
  Weight: 78 kg

DRUGS (13)
  1. LANREOTIDE ACETATE [Suspect]
     Active Substance: LANREOTIDE ACETATE
     Indication: Neuroendocrine carcinoma metastatic
     Route: 065
     Dates: start: 201907
  2. LANREOTIDE ACETATE [Suspect]
     Active Substance: LANREOTIDE ACETATE
     Indication: Carcinoid syndrome
     Route: 065
     Dates: start: 201909
  3. IRBESARTAN [Concomitant]
     Active Substance: IRBESARTAN
     Indication: Hypertension
     Route: 048
     Dates: start: 2018
  4. AMLODIPINE [Concomitant]
     Active Substance: AMLODIPINE BESYLATE
     Indication: Hypertension
     Route: 048
     Dates: start: 2018
  5. SELENASE [Concomitant]
     Dosage: 300 RP
     Route: 048
     Dates: start: 2018
  6. D3-VICOTRAT [Concomitant]
     Dosage: 100.000 I.E. 1 X MONTHLY BY INJECTION
     Dates: start: 2018
  7. TESTOSTERONE [Concomitant]
     Active Substance: TESTOSTERONE
     Dosage: DAILY SKIN APPLICATION
     Dates: start: 2018
  8. PANTOPRAZOLE [Concomitant]
     Active Substance: PANTOPRAZOLE
  9. JANUVIA [Concomitant]
     Active Substance: SITAGLIPTIN PHOSPHATE
  10. DAPAGLIFLOZIN [Concomitant]
     Active Substance: DAPAGLIFLOZIN
     Indication: Diabetes mellitus
  11. MAGNESIUM [Concomitant]
     Active Substance: MAGNESIUM
  12. VITAMINB12 [Concomitant]
  13. VITAMIN D3 [Concomitant]
     Active Substance: CHOLECALCIFEROL

REACTIONS (14)
  - Epilepsy [Not Recovered/Not Resolved]
  - Empty sella syndrome [Unknown]
  - Epilepsy [Unknown]
  - Coma [Unknown]
  - Tremor [Unknown]
  - Osteochondrosis [Unknown]
  - Bladder diverticulum [Unknown]
  - Cyst [Unknown]
  - Gastritis [Unknown]
  - Renal cyst [Unknown]
  - Intestinal dilatation [Unknown]
  - Diastasis recti abdominis [Unknown]
  - Fatigue [Unknown]
  - Injection site nodule [Unknown]

NARRATIVE: CASE EVENT DATE: 20190901
